FAERS Safety Report 21759003 (Version 1)
Quarter: 2022Q4

REPORT INFORMATION
  Report Type: Report from Study
  Country: US (occurrence: US)
  Receive Date: 20221221
  Receipt Date: 20221221
  Transmission Date: 20230112
  Serious: No
  Sender: FDA-Public Use
  Company Number: US-002147023-NVSC2022US293763

PATIENT
  Age: 41 Year

DRUGS (1)
  1. KESIMPTA [Suspect]
     Active Substance: OFATUMUMAB
     Indication: Product used for unknown indication
     Route: 065

REACTIONS (5)
  - Gait disturbance [Unknown]
  - Pain [Unknown]
  - Discomfort [Unknown]
  - Expanded disability status scale [Unknown]
  - Infection [Unknown]
